FAERS Safety Report 16893033 (Version 1)
Quarter: 2019Q4

REPORT INFORMATION
  Report Type: Spontaneous
  Country: CN (occurrence: CN)
  Receive Date: 20191008
  Receipt Date: 20191008
  Transmission Date: 20200122
  Serious: Yes (Other)
  Sender: FDA-Public Use
  Company Number: CN-BEH-2019107570

PATIENT
  Age: 69 Year
  Sex: Female
  Weight: 45 kg

DRUGS (2)
  1. ALBURX [Suspect]
     Active Substance: ALBUMIN HUMAN
     Indication: HYPOPROTEINAEMIA
     Dosage: 10 GRAM, TOT
     Route: 041
     Dates: start: 20190917, end: 20190917
  2. ALBURX [Suspect]
     Active Substance: ALBUMIN HUMAN
     Indication: LUMBAR SPINAL STENOSIS

REACTIONS (5)
  - Product use in unapproved indication [Unknown]
  - Chills [Recovering/Resolving]
  - Discomfort [Recovering/Resolving]
  - Petit mal epilepsy [Recovering/Resolving]
  - No adverse event [Unknown]

NARRATIVE: CASE EVENT DATE: 20190917
